FAERS Safety Report 24983460 (Version 1)
Quarter: 2025Q1

REPORT INFORMATION
  Report Type: Spontaneous
  Country: US (occurrence: US)
  Receive Date: 20250219
  Receipt Date: 20250219
  Transmission Date: 20250409
  Serious: Yes (Other)
  Sender: STRIDES
  Company Number: US-STRIDES ARCOLAB LIMITED-2024SP003082

PATIENT
  Age: 8 Year
  Sex: Male

DRUGS (2)
  1. ETOPOSIDE [Suspect]
     Active Substance: ETOPOSIDE
     Indication: Bone marrow conditioning regimen
     Route: 065
  2. CYCLOPHOSPHAMIDE [Suspect]
     Active Substance: CYCLOPHOSPHAMIDE
     Indication: Bone marrow conditioning regimen
     Route: 065

REACTIONS (2)
  - Viruria [Unknown]
  - BK virus infection [Unknown]
